FAERS Safety Report 14505496 (Version 1)
Quarter: 2018Q1

REPORT INFORMATION
  Report Type: Spontaneous
  Country: US (occurrence: US)
  Receive Date: 20180208
  Receipt Date: 20180208
  Transmission Date: 20180509
  Serious: No
  Sender: FDA-Public Use
  Company Number: US-ENDO PHARMACEUTICALS INC-2017-004495

PATIENT
  Sex: Female

DRUGS (2)
  1. DILTIAZEM HCL [Suspect]
     Active Substance: DILTIAZEM HYDROCHLORIDE
     Indication: HYPERTENSION
     Dosage: UNK UNK, UNKNOWN
     Route: 065
  2. DILTIAZEM HCL [Suspect]
     Active Substance: DILTIAZEM HYDROCHLORIDE
     Dosage: UNK UNK, UNKNOWN
     Route: 065

REACTIONS (5)
  - Nausea [Unknown]
  - Hot flush [Unknown]
  - Product size issue [Unknown]
  - Dizziness [Unknown]
  - Feeling drunk [Unknown]
